FAERS Safety Report 9703305 (Version 1)
Quarter: 2013Q4

REPORT INFORMATION
  Report Type: Spontaneous
  Country: US (occurrence: US)
  Receive Date: 20131122
  Receipt Date: 20131122
  Transmission Date: 20140711
  Serious: No
  Sender: FDA-Public Use
  Company Number: US-009507513-1310USA012443

PATIENT
  Age: 33 Year
  Sex: Female

DRUGS (6)
  1. ASMANEX TWISTHALER [Suspect]
     Dosage: 1 PUFF EVERY NIGHT AT BEDTIME, QD
     Route: 055
     Dates: start: 20120214
  2. SINGULAIR [Concomitant]
     Route: 048
  3. MELOXICAM [Concomitant]
  4. DOXEPIN HYDROCHLORIDE [Concomitant]
  5. TOPIRAMATE [Concomitant]
  6. IMITREX (SUMATRIPTAN SUCCINATE) [Concomitant]

REACTIONS (4)
  - Dyspnoea [Not Recovered/Not Resolved]
  - Device malfunction [Unknown]
  - Drug dose omission [Unknown]
  - Device difficult to use [Unknown]
